FAERS Safety Report 5358016-7 (Version None)
Quarter: 2007Q2

REPORT INFORMATION
  Report Type: 
  Country: None (occurrence: None)
  Receive Date: 20070530
  Receipt Date: 20070227
  Transmission Date: 20071010
  Serious: Yes (Hospitalization, Other)
  Sender: FDA-Public Use
  Company Number: US200612000869

PATIENT
  Sex: Male
  Weight: 113.4 kg

DRUGS (5)
  1. ZYPREXA [Suspect]
     Dosage: 10 MG
     Dates: start: 20010201, end: 20011201
  2. BUPROPION HCL [Concomitant]
  3. CITALOPRAM HYDROBROMIDE [Concomitant]
  4. PAXIL [Concomitant]
  5. VENLAFAXINE HCL [Concomitant]

REACTIONS (6)
  - DIABETES MELLITUS [None]
  - DIABETIC COMA [None]
  - DIABETIC KETOACIDOSIS [None]
  - HYPERGLYCAEMIA [None]
  - PANCREATITIS [None]
  - POLYDIPSIA [None]
